FAERS Safety Report 14964559 (Version 3)
Quarter: 2018Q3

REPORT INFORMATION
  Report Type: Spontaneous
  Country: CA (occurrence: CA)
  Receive Date: 20180601
  Receipt Date: 20180802
  Transmission Date: 20181010
  Serious: Yes (Other)
  Sender: FDA-Public Use
  Company Number: CA-ASTRAZENECA-2018SE70143

PATIENT
  Age: 61 Year
  Sex: Female

DRUGS (2)
  1. PULMICORT TURBUHALER [Suspect]
     Active Substance: BUDESONIDE
     Route: 055
     Dates: start: 20180313
  2. PULMICORT TURBUHALER [Suspect]
     Active Substance: BUDESONIDE
     Dosage: 200, 1 PUFFS TWICE A DAY
     Route: 055

REACTIONS (3)
  - Drug ineffective [Not Recovered/Not Resolved]
  - Disease progression [Unknown]
  - Device malfunction [Unknown]
